FAERS Safety Report 9378018 (Version 1)
Quarter: 2013Q3

REPORT INFORMATION
  Report Type: Spontaneous
  Country: FR (occurrence: FR)
  Receive Date: 20130701
  Receipt Date: 20130701
  Transmission Date: 20140515
  Serious: Yes (Life-Threatening, Hospitalization, Other)
  Sender: FDA-Public Use
  Company Number: FR-B.I. PHARMACEUTICALS,INC./RIDGEFIELD-2013-FF-01777FF

PATIENT
  Age: 82 Year
  Sex: Female

DRUGS (5)
  1. PRADAXA [Suspect]
     Indication: ATRIAL FIBRILLATION
     Dosage: 220 MG
     Route: 048
  2. EXELON [Concomitant]
     Indication: DEMENTIA ALZHEIMER^S TYPE
  3. EBIXA [Concomitant]
     Indication: DEMENTIA ALZHEIMER^S TYPE
  4. MIRTAZAPINE [Concomitant]
     Indication: DEPRESSION
  5. LEVOTHYROX [Concomitant]
     Indication: THYROIDECTOMY

REACTIONS (3)
  - Coma [Recovered/Resolved]
  - Haemorrhagic stroke [Unknown]
  - Myocardial infarction [Unknown]
